FAERS Safety Report 5892760-8 (Version None)
Quarter: 2008Q3

REPORT INFORMATION
  Report Type: 
  Country: None (occurrence: None)
  Receive Date: 20080919
  Receipt Date: 20080919
  Transmission Date: 20090109
  Serious: Yes (Other)
  Sender: FDA-Public Use
  Company Number: None

PATIENT
  Age: 25 Year
  Sex: Female
  Weight: 92.0802 kg

DRUGS (1)
  1. LAMOTRIGINE [Suspect]
     Indication: EPILEPSY
     Dosage: 200 MG TWO TABS TWICE PO
     Route: 048
     Dates: start: 20080810, end: 20080813

REACTIONS (4)
  - CONVULSION [None]
  - FOAMING AT MOUTH [None]
  - TREMOR [None]
  - UNRESPONSIVE TO STIMULI [None]
